FAERS Safety Report 14782740 (Version 2)
Quarter: 2018Q2

REPORT INFORMATION
  Report Type: Report from Study
  Country: US (occurrence: US)
  Receive Date: 20180420
  Receipt Date: 20180510
  Transmission Date: 20180711
  Serious: Yes (Death, Life-Threatening, Other)
  Sender: FDA-Public Use
  Company Number: US-B.I. PHARMACEUTICALS,INC./RIDGEFIELD-2017-BI-053357

PATIENT
  Age: 80 Year
  Sex: Male
  Weight: 63.5 kg

DRUGS (24)
  1. ASPIRIN 81 [Concomitant]
     Active Substance: ASPIRIN
     Indication: ANALGESIC DRUG LEVEL
  2. VITAMIN C [Concomitant]
     Active Substance: ASCORBIC ACID
     Indication: VITAMIN SUPPLEMENTATION
     Route: 048
     Dates: start: 20180216
  3. VITAMIN D3 [Concomitant]
     Active Substance: CHOLECALCIFEROL
     Indication: VITAMIN SUPPLEMENTATION
     Route: 048
     Dates: start: 20180216
  4. XANAX [Concomitant]
     Active Substance: ALPRAZOLAM
     Indication: ANXIETY
     Route: 048
     Dates: start: 20180220
  5. AMBIEN CR [Concomitant]
     Active Substance: ZOLPIDEM TARTRATE
     Indication: SEDATIVE THERAPY
     Route: 048
     Dates: start: 20180216
  6. ATORVASTATIN [Concomitant]
     Active Substance: ATORVASTATIN
     Indication: HYPERLIPIDAEMIA
     Route: 048
     Dates: start: 20180216
  7. COZAAR [Concomitant]
     Active Substance: LOSARTAN POTASSIUM
     Indication: DRUG THERAPY
     Route: 048
     Dates: start: 20180216
  8. OFEV [Suspect]
     Active Substance: NINTEDANIB
     Route: 048
     Dates: start: 20171007
  9. ACETAMINOPHEN. [Concomitant]
     Active Substance: ACETAMINOPHEN
     Indication: ANALGESIC THERAPY
     Route: 048
     Dates: start: 20180216
  10. DESLORATADINE. [Concomitant]
     Active Substance: DESLORATADINE
     Indication: ANTIALLERGIC THERAPY
     Route: 048
     Dates: start: 20180216
  11. OFEV [Suspect]
     Active Substance: NINTEDANIB
     Indication: IDIOPATHIC PULMONARY FIBROSIS
     Route: 048
     Dates: start: 201707
  12. AMLODIPINE [Concomitant]
     Active Substance: AMLODIPINE BESYLATE
     Indication: DRUG THERAPY
     Route: 065
  13. BACTRIM [Concomitant]
     Active Substance: SULFAMETHOXAZOLE\TRIMETHOPRIM
     Indication: ANTIBIOTIC THERAPY
     Dosage: 400MG-80MG
     Route: 048
     Dates: start: 20180216
  14. MED PASS [Concomitant]
     Indication: PRODUCT USED FOR UNKNOWN INDICATION
     Dosage: DOSE 2 OZ
     Route: 048
     Dates: start: 20180223
  15. METFORMIN [Concomitant]
     Active Substance: METFORMIN HYDROCHLORIDE
     Indication: DRUG THERAPY
     Route: 048
     Dates: start: 20180216
  16. OFEV [Suspect]
     Active Substance: NINTEDANIB
     Route: 048
     Dates: start: 20180219, end: 20180225
  17. ACETAMINOPHEN. [Concomitant]
     Active Substance: ACETAMINOPHEN
     Indication: ANTIPYRESIS
     Route: 048
  18. PREDNISONE. [Concomitant]
     Active Substance: PREDNISONE
     Indication: DRUG THERAPY
     Route: 048
     Dates: start: 20180224
  19. OFEV [Suspect]
     Active Substance: NINTEDANIB
     Route: 048
     Dates: start: 20170808
  20. AMLODIPINE [Concomitant]
     Active Substance: AMLODIPINE BESYLATE
     Route: 048
     Dates: start: 20180216
  21. ASPIRIN 81 [Concomitant]
     Active Substance: ASPIRIN
     Indication: PLATELET AGGREGATION
     Route: 048
     Dates: start: 20180216
  22. MULTIVITAMIN TABLET [Concomitant]
     Indication: VITAMIN SUPPLEMENTATION
     Route: 048
     Dates: start: 20180216
  23. MODIUM A-D [Concomitant]
     Indication: DIARRHOEA
     Dosage: PM FOR LOOSE STOOLS, 4MG EARLY MORNING FIRST DOSE, 2 MG PO Q G HOURS THERE AFTER
     Route: 048
     Dates: start: 20180221
  24. PREDNISONE. [Concomitant]
     Active Substance: PREDNISONE
     Route: 048
     Dates: start: 20180228

REACTIONS (11)
  - Acute kidney injury [Recovering/Resolving]
  - Nausea [Not Recovered/Not Resolved]
  - Diarrhoea [Not Recovered/Not Resolved]
  - Age-related macular degeneration [Unknown]
  - Sepsis [Unknown]
  - Cough [Unknown]
  - Bowel movement irregularity [Unknown]
  - Idiopathic pulmonary fibrosis [Fatal]
  - Gastrointestinal haemorrhage [Unknown]
  - Dyspnoea exertional [Unknown]
  - Dyspnoea [Unknown]

NARRATIVE: CASE EVENT DATE: 201711
